FAERS Safety Report 5338506-3 (Version None)
Quarter: 2007Q2

REPORT INFORMATION
  Report Type: 
  Country: None (occurrence: None)
  Receive Date: 20070405
  Receipt Date: 20061222
  Transmission Date: 20071010
  Serious: No
  Sender: FDA-Public Use
  Company Number: US200611001378

PATIENT
  Age: 35 Year
  Sex: Female

DRUGS (3)
  1. CYMBALTA [Suspect]
     Indication: DEPRESSION
     Dosage: 30 MG, ORAL
     Route: 048
     Dates: start: 20061031, end: 20061107
  2. MICARDIS [Concomitant]
  3. XANAX [Concomitant]

REACTIONS (4)
  - MOOD SWINGS [None]
  - NIGHTMARE [None]
  - PALPITATIONS [None]
  - THINKING ABNORMAL [None]
